FAERS Safety Report 5370363-1 (Version None)
Quarter: 2007Q2

REPORT INFORMATION
  Report Type: 
  Country: None (occurrence: None)
  Receive Date: 20070626
  Receipt Date: 20070613
  Transmission Date: 20071010
  Serious: Yes (Hospitalization)
  Sender: FDA-Public Use
  Company Number: 11592284

PATIENT
  Age: 35 Year
  Sex: Male

DRUGS (17)
  1. EFAVIRENZ [Suspect]
     Indication: HIV INFECTION
     Dosage: INTERRUPTED 11/8/00, RESTARTED 11/16/00.
     Route: 048
     Dates: start: 19991004, end: 20001108
  2. ZERIT [Suspect]
     Indication: HIV INFECTION
     Route: 048
     Dates: start: 19970501, end: 19991003
  3. EPIVIR [Suspect]
     Indication: HIV INFECTION
     Route: 048
     Dates: start: 19991004, end: 20001108
  4. NORVIR [Suspect]
     Indication: HIV INFECTION
     Dosage: 400 MG/BID 20JAN99 TO 3OCT99, 200 MG/BID 9OCT99 TO 8NOV00 THEN 400 MG/BID 16NOV00 TO CONT.
     Route: 048
     Dates: start: 19901009, end: 20001108
  5. ZIAGEN [Suspect]
     Indication: HIV INFECTION
     Dosage: THERAPY INTERRUPTED 11/8/00, RESTARTED 11/16/00
     Route: 048
     Dates: start: 19991004, end: 20011108
  6. INVIRASE [Suspect]
     Indication: HIV INFECTION
     Route: 048
     Dates: start: 19900118, end: 20011003
  7. PROZEI [Suspect]
     Indication: HIV INFECTION
     Dosage: THERAPY INTERRUPTED 11/8/00, RESTARTED 11/16/00
     Route: 048
     Dates: start: 19991004, end: 20011108
  8. AMIKACIN SULFATE [Concomitant]
     Indication: ATYPICAL MYCOBACTERIAL INFECTION
     Dates: start: 19990903, end: 19991021
  9. CIPROFLOXACIN [Concomitant]
     Indication: ATYPICAL MYCOBACTERIAL INFECTION
     Dates: start: 19990826, end: 19991021
  10. ALLOPURINOL [Concomitant]
     Indication: HYPERURICAEMIA
     Dates: start: 19981101
  11. AZITHROMYCIN [Concomitant]
     Indication: ATYPICAL MYCOBACTERIAL INFECTION
     Dosage: THERAPY INTERRUPTED 10/21/99, RESTARTED 10/22/99
     Dates: start: 19991002
  12. ETHAMBUTOL HYDROCHLORIDE [Concomitant]
     Indication: ATYPICAL MYCOBACTERIAL INFECTION
     Dates: start: 19990826, end: 19991021
  13. METRONIDAZOLE [Concomitant]
     Indication: ATYPICAL MYCOBACTERIAL INFECTION
     Dates: start: 19991016, end: 19991026
  14. SULFAMETHOXAZOLE AND TRIMETHOPRIM [Concomitant]
     Indication: PROPHYLAXIS
     Dates: start: 19981101
  15. CLARITHROMYCIN [Concomitant]
     Dates: start: 19990826, end: 19991001
  16. POLARAMINE [Concomitant]
     Dates: start: 19990201, end: 19990208
  17. CRIXIVAN [Concomitant]
     Dates: start: 19970501, end: 19990118

REACTIONS (4)
  - HERPES ZOSTER [None]
  - HYPERLIPIDAEMIA [None]
  - LYMPHOMA [None]
  - PSEUDOMEMBRANOUS COLITIS [None]
